FAERS Safety Report 18453451 (Version 1)
Quarter: 2020Q4

REPORT INFORMATION
  Report Type: Spontaneous
  Country: US (occurrence: US)
  Receive Date: 20201102
  Receipt Date: 20201102
  Transmission Date: 20210114
  Serious: Yes (Other)
  Sender: FDA-Public Use
  Company Number: US-BAYER-2020-233734

PATIENT
  Age: 31 Year
  Sex: Female

DRUGS (1)
  1. SKYLA [Suspect]
     Active Substance: LEVONORGESTREL
     Indication: CONTRACEPTION
     Dosage: 14 ?G PER DAY CONTINUOUSLY
     Route: 015
     Dates: start: 20190621, end: 20200227

REACTIONS (3)
  - Drug ineffective [None]
  - Emotional distress [Not Recovered/Not Resolved]
  - Pregnancy with contraceptive device [Recovering/Resolving]

NARRATIVE: CASE EVENT DATE: 20200221
